FAERS Safety Report 23775652 (Version 1)
Quarter: 2024Q2

REPORT INFORMATION
  Report Type: Spontaneous
  Country: US (occurrence: US)
  Receive Date: 20240423
  Receipt Date: 20240423
  Transmission Date: 20240716
  Serious: Yes (Hospitalization)
  Sender: FDA-Public Use
  Company Number: US-ABBVIE-5729389

PATIENT
  Age: 82 Year
  Sex: Male

DRUGS (1)
  1. MAVYRET [Suspect]
     Active Substance: GLECAPREVIR\PIBRENTASVIR
     Indication: Rhabdomyolysis
     Dosage: 100300 DOSAGE FORM
     Route: 048
     Dates: start: 20240313

REACTIONS (5)
  - Confusional state [Recovered/Resolved]
  - Aspartate aminotransferase increased [Unknown]
  - Alanine aminotransferase increased [Unknown]
  - Blood alkaline phosphatase increased [Unknown]
  - Blood creatine phosphokinase abnormal [Unknown]

NARRATIVE: CASE EVENT DATE: 20240401
